FAERS Safety Report 10028591 (Version 1)
Quarter: 2014Q1

REPORT INFORMATION
  Report Type: Spontaneous
  Country: US (occurrence: US)
  Receive Date: 20140321
  Receipt Date: 20140321
  Transmission Date: 20141002
  Serious: Yes (Life-Threatening, Hospitalization, Other)
  Sender: FDA-Public Use
  Company Number: US-GLAXOSMITHKLINE-A1065161A

PATIENT
  Age: 4 Year
  Sex: Male

DRUGS (4)
  1. VENTOLIN [Suspect]
     Indication: ASTHMA
     Dosage: 2PUFF TWICE PER DAY
     Route: 055
     Dates: start: 2012
  2. VERAMYST [Suspect]
     Indication: ASTHMA
     Dosage: 1SPR IN THE MORNING
     Route: 065
     Dates: start: 2012
  3. FLOVENT [Suspect]
     Indication: ASTHMA
     Dosage: 2PUFF TWICE PER DAY
     Route: 055
     Dates: start: 2012
  4. NO CONCURRENT MEDICATION [Concomitant]

REACTIONS (2)
  - Asthma [Recovered/Resolved]
  - Viral infection [Recovered/Resolved]
